FAERS Safety Report 22119988 (Version 1)
Quarter: 2023Q1

REPORT INFORMATION
  Report Type: Spontaneous
  Country: US (occurrence: None)
  Receive Date: 20230321
  Receipt Date: 20230321
  Transmission Date: 20230417
  Serious: No
  Sender: FDA-Public Use
  Company Number: US-ROCHE-3163312

PATIENT
  Sex: Male

DRUGS (7)
  1. ERIVEDGE [Suspect]
     Active Substance: VISMODEGIB
     Indication: Skin lesion
     Route: 048
     Dates: start: 202207
  2. ERIVEDGE [Suspect]
     Active Substance: VISMODEGIB
     Indication: Basal cell carcinoma
  3. ATORVASTATIN [Concomitant]
     Active Substance: ATORVASTATIN
  4. CEPHALEXIN [Concomitant]
     Active Substance: CEPHALEXIN
  5. KETOCONAZOLE [Concomitant]
     Active Substance: KETOCONAZOLE
  6. LISINOPRIL [Concomitant]
     Active Substance: LISINOPRIL
  7. NIFEDIPINE [Concomitant]
     Active Substance: NIFEDIPINE

REACTIONS (3)
  - Weight decreased [Not Recovered/Not Resolved]
  - Decreased appetite [Not Recovered/Not Resolved]
  - Ageusia [Not Recovered/Not Resolved]
